FAERS Safety Report 5141309-6 (Version None)
Quarter: 2006Q4

REPORT INFORMATION
  Report Type: 
  Country: None (occurrence: None)
  Receive Date: 20061101
  Receipt Date: 20060323
  Transmission Date: 20070319
  Serious: Yes (Hospitalization)
  Sender: FDA-Public Use
  Company Number: NL-ROCHE-441693

PATIENT
  Age: 63 Year
  Sex: Female

DRUGS (9)
  1. CAPECITABINE [Suspect]
     Dosage: GIVEN TWICE A DAY ON DAYS 1-14 OF THREE-WEEK CYCLE.
     Route: 048
     Dates: start: 20060315
  2. CAPECITABINE [Suspect]
     Dosage: GIVEN TWICE A DAY ON DAYS 1-14 OF THREE-WEEK CYCLE.
     Route: 048
  3. BEVACIZUMAB [Suspect]
     Dosage: GIVEN ON DAY ONE OF THREE-WEEK CYCLE.
     Route: 042
     Dates: start: 20060315
  4. BEVACIZUMAB [Suspect]
     Dosage: GIVEN ON DAY ONE OF THREE-WEEK CYCLE.
     Route: 042
  5. OXALIPLATIN [Suspect]
     Dosage: GIVEN ON DAY ONE OF THREE-WEEK CYCLE.
     Route: 042
     Dates: start: 20060315
  6. ATENOLOL [Concomitant]
  7. ACETAMINOPHEN [Concomitant]
     Dosage: DOSIS REGIMEN: 3 X 1000 MG.
  8. TRAMADOL HCL [Concomitant]
     Dosage: DOSIS REGIMEN: 3 X 50 MG.
  9. AMLODIPINE [Concomitant]

REACTIONS (4)
  - ABDOMINAL PAIN [None]
  - COLON NEOPLASM [None]
  - NAUSEA [None]
  - VOMITING [None]
